FAERS Safety Report 6646258-X (Version None)
Quarter: 2010Q1

REPORT INFORMATION
  Report Type: 
  Country: None (occurrence: None)
  Receive Date: 20100323
  Receipt Date: 20100217
  Transmission Date: 20100710
  Serious: No
  Sender: FDA-Public Use
  Company Number: US-BAYER-200915960BCC

PATIENT
  Age: 60 Year
  Sex: Female
  Weight: 77 kg

DRUGS (4)
  1. ALEVE (CAPLET) [Suspect]
     Indication: MYALGIA
     Dosage: TOTAL DAILY DOSE: 880 MG  UNIT DOSE: 220 MG
     Route: 048
  2. ARIMIDEX [Concomitant]
     Route: 065
  3. CENTRUM SILVER [Concomitant]
     Route: 065
  4. CITRACAL [Concomitant]
     Route: 065

REACTIONS (1)
  - MYALGIA [None]
